FAERS Safety Report 7109159-9 (Version None)
Quarter: 2010Q4

REPORT INFORMATION
  Report Type: 
  Country: None (occurrence: None)
  Receive Date: 20101117
  Receipt Date: 20101110
  Transmission Date: 20110411
  Serious: Yes (Other)
  Sender: FDA-Public Use
  Company Number: BR-PFIZER INC-2010145450

PATIENT
  Age: 60 Year
  Sex: Female

DRUGS (3)
  1. LYRICA [Suspect]
     Indication: MUSCULOSKELETAL PAIN
     Dosage: 75 MG, 1X/DAY
     Route: 048
     Dates: start: 20101108, end: 20101110
  2. SIMVASTATIN [Concomitant]
     Indication: BLOOD CHOLESTEROL INCREASED
     Dosage: UNK
     Dates: start: 20071001
  3. ENALAPRIL MALEATE AND HYDROCHLOROTHIAZIDE [Concomitant]
     Indication: HYPERTENSION
     Dosage: UNK
     Dates: start: 20071001

REACTIONS (5)
  - EYELID OEDEMA [None]
  - HYPERSENSITIVITY [None]
  - LIP SWELLING [None]
  - OEDEMA PERIPHERAL [None]
  - SWELLING FACE [None]
